FAERS Safety Report 20024597 (Version 2)
Quarter: 2021Q4

REPORT INFORMATION
  Report Type: Report from Study
  Country: US (occurrence: US)
  Receive Date: 20211102
  Receipt Date: 20211112
  Transmission Date: 20220303
  Serious: Yes (Death, Hospitalization)
  Sender: FDA-Public Use
  Company Number: US-EXELIXIS-CABO-21045092

PATIENT
  Age: 16 Year
  Sex: Male
  Weight: 145 kg

DRUGS (15)
  1. CABOMETYX [Suspect]
     Active Substance: CABOZANTINIB S-MALATE
     Indication: Ewing^s sarcoma
     Dosage: 60 MG, QD
     Route: 048
     Dates: start: 20210515
  2. CABOMETYX [Suspect]
     Active Substance: CABOZANTINIB S-MALATE
     Dosage: UNK
     Dates: start: 202106, end: 20210915
  3. XARELTO [Concomitant]
     Active Substance: RIVAROXABAN
  4. BACTRIM [Concomitant]
     Active Substance: SULFAMETHOXAZOLE\TRIMETHOPRIM
  5. TYLENOL [Concomitant]
     Active Substance: ACETAMINOPHEN
  6. ZOFRAN [Concomitant]
     Active Substance: ONDANSETRON HYDROCHLORIDE
  7. NEURONTIN [Concomitant]
     Active Substance: GABAPENTIN
  8. SYNTHROID [Concomitant]
     Active Substance: LEVOTHYROXINE SODIUM
  9. ROXICODONE [Concomitant]
     Active Substance: OXYCODONE HYDROCHLORIDE
  10. VEPESID [Concomitant]
     Active Substance: ETOPOSIDE
  11. SULFAMETHOXAZOLE AND TRIMETHOPRIM [Concomitant]
     Active Substance: SULFAMETHOXAZOLE\TRIMETHOPRIM
  12. LIDOCAINE [Concomitant]
     Active Substance: LIDOCAINE
  13. ZINC-15 ORAL [Concomitant]
  14. MOTRIN [Concomitant]
     Active Substance: IBUPROFEN
  15. LEVOTHYROXINE [Concomitant]
     Active Substance: LEVOTHYROXINE

REACTIONS (24)
  - Nephrolithiasis [Unknown]
  - Pleural effusion [Unknown]
  - Pneumothorax [Fatal]
  - Malignant neoplasm progression [Fatal]
  - Urine output decreased [Unknown]
  - Hepatic steatosis [Unknown]
  - Lung opacity [Unknown]
  - Early satiety [Unknown]
  - Sensory loss [Unknown]
  - Hair colour changes [Unknown]
  - Gingivitis [Unknown]
  - Diarrhoea [Unknown]
  - Hypothyroidism [Unknown]
  - Decreased appetite [Not Recovered/Not Resolved]
  - Hyperbilirubinaemia [Unknown]
  - Transaminases increased [Unknown]
  - Decreased activity [Unknown]
  - Taste disorder [Unknown]
  - Gingival bleeding [Unknown]
  - COVID-19 [Unknown]
  - Metastases to lung [Unknown]
  - Fatigue [Unknown]
  - Dehydration [Unknown]
  - Off label use [Unknown]

NARRATIVE: CASE EVENT DATE: 20210915
